FAERS Safety Report 7699511-5 (Version None)
Quarter: 2011Q3

REPORT INFORMATION
  Report Type: 
  Country: None (occurrence: None)
  Receive Date: 20110820
  Receipt Date: 20110406
  Transmission Date: 20111222
  Serious: No
  Sender: FDA-Public Use
  Company Number: US-ALLERGAN-1104872US

PATIENT
  Age: 84 Year
  Sex: Female

DRUGS (1)
  1. SANCTURA XR [Suspect]
     Indication: HYPERTONIC BLADDER
     Dosage: 1 CAPSULE QAM
     Route: 048
     Dates: start: 20110201

REACTIONS (2)
  - URINE OUTPUT DECREASED [None]
  - ABDOMINAL DISCOMFORT [None]
